FAERS Safety Report 18970045 (Version 1)
Quarter: 2021Q1

REPORT INFORMATION
  Report Type: Spontaneous
  Country: US (occurrence: US)
  Receive Date: 20210304
  Receipt Date: 20210304
  Transmission Date: 20210420
  Serious: Yes (Hospitalization, Other)
  Sender: FDA-Public Use
  Company Number: US-SA-2021SA067095

PATIENT
  Age: 80 Year
  Sex: Male
  Weight: 102 kg

DRUGS (3)
  1. ELIQUIS [Concomitant]
     Active Substance: APIXABAN
     Dosage: 5 MG, Q12H
  2. PLAVIX [Suspect]
     Active Substance: CLOPIDOGREL BISULFATE
     Indication: CHEST PAIN
     Dosage: 75 MG, QD
     Route: 048
     Dates: start: 202004
  3. PLAVIX [Suspect]
     Active Substance: CLOPIDOGREL BISULFATE
     Indication: PROPHYLAXIS

REACTIONS (9)
  - Pulmonary embolism [Unknown]
  - Confusional state [Unknown]
  - Dyspnoea [Unknown]
  - Abdominal pain [Unknown]
  - Dizziness [Unknown]
  - Pallor [Unknown]
  - Fatigue [Unknown]
  - Deep vein thrombosis [Unknown]
  - Headache [Unknown]
